FAERS Safety Report 5547435-1 (Version None)
Quarter: 2007Q4

REPORT INFORMATION
  Report Type: 
  Country: None (occurrence: None)
  Receive Date: 20071211
  Receipt Date: 20070223
  Transmission Date: 20080405
  Serious: No
  Sender: FDA-Public Use
  Company Number: US-AMGEN-KDL212476

PATIENT
  Sex: Female

DRUGS (11)
  1. ENBREL [Suspect]
     Indication: RHEUMATOID ARTHRITIS
     Route: 058
     Dates: start: 20060907
  2. LEVOTHROID [Concomitant]
  3. DIAMOX [Concomitant]
  4. ALDACTONE [Concomitant]
  5. UNSPECIFIED MEDICATION [Concomitant]
  6. EVOXAC [Concomitant]
  7. VITAMIN E [Concomitant]
  8. LASIX [Concomitant]
  9. MICRO-K [Concomitant]
  10. ZITHROMAX [Concomitant]
  11. RESTASIS [Concomitant]
     Route: 047

REACTIONS (1)
  - INFLUENZA [None]
